FAERS Safety Report 7487938-6 (Version None)
Quarter: 2011Q2

REPORT INFORMATION
  Report Type: 
  Country: None (occurrence: None)
  Receive Date: 20110511
  Receipt Date: 20110426
  Transmission Date: 20111010
  Serious: Yes (Other)
  Sender: FDA-Public Use
  Company Number: AUR-APL-2011-01466

PATIENT
  Age: 87 Year
  Sex: Female
  Weight: 70 kg

DRUGS (4)
  1. ISOSORBID MONONITRATE [Concomitant]
  2. SIMVASTATIN [Suspect]
     Indication: HYPERCHOLESTEROLAEMIA
     Dosage: 40MG-UNK-ORAL
     Route: 048
     Dates: end: 20110408
  3. RAMIPRIL [Concomitant]
  4. ACETYLSALICYLIC ACID SRT [Concomitant]

REACTIONS (1)
  - IRITIS [None]
